FAERS Safety Report 24033995 (Version 1)
Quarter: 2024Q3

REPORT INFORMATION
  Report Type: Spontaneous
  Country: US (occurrence: US)
  Receive Date: 20240701
  Receipt Date: 20240701
  Transmission Date: 20241017
  Serious: Yes (Hospitalization, Other)
  Sender: ALEMBIC
  Company Number: US-ALEMBIC PHARMACUETICALS LIMITED-2024SCAL000924

PATIENT

DRUGS (1)
  1. METOPROLOL TARTRATE [Suspect]
     Active Substance: METOPROLOL TARTRATE
     Indication: Hypertension
     Dosage: UNK
     Route: 065

REACTIONS (10)
  - BRASH syndrome [Recovering/Resolving]
  - Electrocardiogram QT prolonged [Recovering/Resolving]
  - Acute kidney injury [Recovering/Resolving]
  - Bradycardia [Recovering/Resolving]
  - Shock [Unknown]
  - Hyperkalaemia [Recovering/Resolving]
  - Sinus bradycardia [Recovering/Resolving]
  - Circulatory collapse [Recovering/Resolving]
  - Metabolic acidosis [Recovering/Resolving]
  - Hypotension [Recovering/Resolving]
